FAERS Safety Report 6737866-6 (Version None)
Quarter: 2010Q2

REPORT INFORMATION
  Report Type: 
  Country: None (occurrence: None)
  Receive Date: 20100520
  Receipt Date: 20100510
  Transmission Date: 20101027
  Serious: Yes (Death, Hospitalization, Other)
  Sender: FDA-Public Use
  Company Number: 230790J07USA

PATIENT
  Age: 57 Year
  Sex: Female
  Weight: 67 kg

DRUGS (4)
  1. REBIF [Suspect]
     Indication: OFF LABEL USE
     Dosage: 44 MCG, 3 IN 1 WK, SUBCUTANEOUS
     Route: 058
     Dates: start: 20070916, end: 20090801
  2. NIACIN [Concomitant]
  3. TEGRETOL [Concomitant]
  4. PREDNISONE TAB [Concomitant]

REACTIONS (3)
  - GASTROINTESTINAL DISORDER [None]
  - HEPATIC NECROSIS [None]
  - OFF LABEL USE [None]
